FAERS Safety Report 6062651-0 (Version None)
Quarter: 2009Q1

REPORT INFORMATION
  Report Type: 
  Country: None (occurrence: None)
  Receive Date: 20090203
  Receipt Date: 20090122
  Transmission Date: 20090719
  Serious: Yes (Other)
  Sender: FDA-Public Use
  Company Number: US-PFIZER INC-2009162431

PATIENT
  Weight: 49.5 kg

DRUGS (17)
  1. ZITHROMAX [Suspect]
  2. PREDNISONE [Suspect]
     Dosage: 40 MG, 1X/DAY
  3. PREDNISONE [Suspect]
     Dosage: 10 MG, 1X/DAY
  4. KETEK [Suspect]
     Indication: CHRONIC SINUSITIS
     Dosage: 400 MG, UNK
     Dates: start: 20050405, end: 20050413
  5. MOTRIN [Suspect]
     Dosage: 200 MG, EVERY 4 HRS
  6. AUGMENTIN '125' [Suspect]
     Indication: SINUSITIS
     Dosage: UNK
     Dates: start: 20050126, end: 20050206
  7. ZOCOR [Suspect]
     Indication: HYPERCHOLESTEROLAEMIA
     Dosage: 10 MG, 1X/DAY
  8. HERBAL PREPARATION INGREDIENTS UNKNOWN [Suspect]
     Indication: BREAST CYST
  9. FOSAMAX [Concomitant]
  10. MULTI-VITAMINS [Concomitant]
  11. COENZYME Q10 [Concomitant]
  12. EVENING PRIMROSE OIL [Concomitant]
  13. VITAMIN E [Concomitant]
  14. MUCINEX [Concomitant]
  15. LEVAQUIN [Concomitant]
  16. LASIX [Concomitant]
  17. ATROVENT [Concomitant]

REACTIONS (17)
  - ANOREXIA [None]
  - BLOOD ALBUMIN DECREASED [None]
  - BLOOD BILIRUBIN INCREASED [None]
  - C-REACTIVE PROTEIN INCREASED [None]
  - CHOLESTATIC LIVER INJURY [None]
  - FATIGUE [None]
  - HAEMATURIA [None]
  - HERPES ZOSTER [None]
  - JAUNDICE [None]
  - LIVER FUNCTION TEST ABNORMAL [None]
  - ORAL CANDIDIASIS [None]
  - PAIN [None]
  - PROTEINURIA [None]
  - PYREXIA [None]
  - RASH [None]
  - URINE ANALYSIS ABNORMAL [None]
  - WEIGHT DECREASED [None]
